FAERS Safety Report 8240580-1 (Version None)
Quarter: 2012Q1

REPORT INFORMATION
  Report Type: 
  Country: None (occurrence: None)
  Receive Date: 20120328
  Receipt Date: 20120323
  Transmission Date: 20120608
  Serious: Yes (Other)
  Sender: FDA-Public Use
  Company Number: US-SANOFI-AVENTIS-2012SA021047

PATIENT
  Sex: Male

DRUGS (1)
  1. LEUPROLIDE ACETATE [Suspect]
     Indication: PROSTATE CANCER
     Dosage: DOSE- ADMINISTERED TWICE, ONCE EVERY 6 MONTHS.
     Route: 030

REACTIONS (1)
  - COLONIC PSEUDO-OBSTRUCTION [None]
